FAERS Safety Report 17425492 (Version 1)
Quarter: 2020Q1

REPORT INFORMATION
  Report Type: Spontaneous
  Country: US (occurrence: US)
  Receive Date: 20200218
  Receipt Date: 20200218
  Transmission Date: 20200409
  Serious: Yes (Hospitalization)
  Sender: FDA-Public Use
  Company Number: US-CIPLA LTD.-2019US07078

PATIENT

DRUGS (3)
  1. ATORVASTATIN APOTEX [Suspect]
     Active Substance: ATORVASTATIN
     Dosage: 2200 MILLIGRAM (220 10 MG TABLETS)
     Route: 065
  2. ALFUZOSIN [Suspect]
     Active Substance: ALFUZOSIN
     Dosage: 7 DOSAGE FORM, TABLETS
     Route: 065
  3. AMLODIPINE [Suspect]
     Active Substance: AMLODIPINE BESYLATE
     Dosage: 60 DOSAGE FORM, TABLETS
     Route: 065

REACTIONS (1)
  - Overdose [Unknown]
